FAERS Safety Report 16214186 (Version 2)
Quarter: 2020Q3

REPORT INFORMATION
  Report Type: Spontaneous
  Country: IT (occurrence: IT)
  Receive Date: 20190418
  Receipt Date: 20200207
  Transmission Date: 20201105
  Serious: Yes (Life-Threatening, Hospitalization, Other)
  Sender: FDA-Public Use
  Company Number: IT-SA-2018SA080285

PATIENT
  Age: 31 Year
  Sex: Female
  Weight: 55 kg

DRUGS (4)
  1. DIMETHYL FUMARATE [Concomitant]
     Active Substance: DIMETHYL FUMARATE
     Indication: MULTIPLE SCLEROSIS
     Dosage: UNK
     Dates: start: 2014, end: 2016
  2. FINGOLIMOD. [Suspect]
     Active Substance: FINGOLIMOD
     Indication: MULTIPLE SCLEROSIS
     Dosage: UNK
     Dates: start: 2012, end: 2013
  3. LEMTRADA [Suspect]
     Active Substance: ALEMTUZUMAB
     Indication: MULTIPLE SCLEROSIS
     Dosage: 36 MG
     Route: 041
     Dates: start: 20161215, end: 20180103
  4. GLATIRAMER ACETATE. [Suspect]
     Active Substance: GLATIRAMER ACETATE
     Indication: MULTIPLE SCLEROSIS
     Dosage: UNK
     Dates: start: 2013, end: 2014

REACTIONS (11)
  - Drug ineffective [Unknown]
  - Progressive multifocal leukoencephalopathy [Recovering/Resolving]
  - Paraesthesia [Unknown]
  - Generalised tonic-clonic seizure [Recovering/Resolving]
  - Brain oedema [Recovering/Resolving]
  - Headache [Recovered/Resolved]
  - Lymphopenia [Recovering/Resolving]
  - Encephalitis [Unknown]
  - Immune reconstitution inflammatory syndrome [Unknown]
  - JC polyomavirus test positive [Recovering/Resolving]
  - Dysarthria [Unknown]

NARRATIVE: CASE EVENT DATE: 201802
